FAERS Safety Report 9359991 (Version 2)
Quarter: 2013Q2

REPORT INFORMATION
  Report Type: Spontaneous
  Country: US (occurrence: US)
  Receive Date: 20130621
  Receipt Date: 20130626
  Transmission Date: 20140414
  Serious: Yes (Other)
  Sender: FDA-Public Use
  Company Number: US-RB-055174-13

PATIENT
  Age: 82 Year
  Sex: Female

DRUGS (7)
  1. MUCINEX [Suspect]
     Indication: BRONCHIECTASIS
     Dosage: USED 2 TABLETS,1 TAB IN MORNING ANOTHER IN EVENING 09-JUN-2013.TAKING DRUG FOR YEARS AT 2 TABS A DAY
     Route: 048
     Dates: end: 20130609
  2. ALBUTEROL [Concomitant]
     Indication: PRODUCT USED FOR UNKNOWN INDICATION
  3. PULMICORT [Concomitant]
     Indication: PRODUCT USED FOR UNKNOWN INDICATION
  4. CALCIUM [Concomitant]
     Indication: PRODUCT USED FOR UNKNOWN INDICATION
  5. VITAMIN D [Concomitant]
     Indication: PRODUCT USED FOR UNKNOWN INDICATION
  6. ALEVE [Concomitant]
     Indication: PRODUCT USED FOR UNKNOWN INDICATION
  7. IBUPROFEN [Concomitant]
     Indication: OSTEOARTHRITIS

REACTIONS (3)
  - Haemoptysis [Recovered/Resolved]
  - Off label use [Recovered/Resolved]
  - Incorrect drug administration duration [Recovered/Resolved]
